FAERS Safety Report 6781725-X (Version None)
Quarter: 2010Q2

REPORT INFORMATION
  Report Type: 
  Country: None (occurrence: None)
  Receive Date: 20100621
  Receipt Date: 20100610
  Transmission Date: 20101027
  Serious: Yes (Other)
  Sender: FDA-Public Use
  Company Number: GB-JNJFOC-20100604247

PATIENT
  Age: 59 Year
  Sex: Male

DRUGS (6)
  1. STELARA [Suspect]
     Indication: PSORIATIC ARTHROPATHY
     Route: 058
  2. STELARA [Suspect]
     Indication: PSORIASIS
     Route: 058
  3. HUMIRA [Concomitant]
     Indication: DRUG USE FOR UNKNOWN INDICATION
     Route: 058
  4. METHOTREXATE [Concomitant]
     Indication: DRUG USE FOR UNKNOWN INDICATION
     Route: 048
  5. HUMIRA [Concomitant]
  6. METHOTREXATE [Concomitant]
     Route: 048

REACTIONS (3)
  - FINGER DEFORMITY [None]
  - OFF LABEL USE [None]
  - PAIN IN EXTREMITY [None]
